FAERS Safety Report 11814805 (Version 1)
Quarter: 2015Q4

REPORT INFORMATION
  Report Type: Spontaneous
  Country: HR (occurrence: HR)
  Receive Date: 20151209
  Receipt Date: 20151209
  Transmission Date: 20160305
  Serious: Yes (Hospitalization, Other)
  Sender: FDA-Public Use
  Company Number: HR-TEVA-615793ISR

PATIENT
  Age: 45 Year
  Sex: Male

DRUGS (3)
  1. CISPLATIN PFIZER [Suspect]
     Active Substance: CISPLATIN
     Indication: OESOPHAGEAL CARCINOMA
     Dosage: INFUSION AMPOULES, VIALS/BOTTLES
     Route: 042
     Dates: start: 20151119, end: 20151119
  2. CONCOR COR [Concomitant]
     Active Substance: BISOPROLOL FUMARATE
     Route: 048
  3. FLUOROURACIL PLIVA 500MG/10ML [Suspect]
     Active Substance: FLUOROURACIL
     Indication: OESOPHAGEAL CARCINOMA
     Dosage: VIALS
     Route: 042
     Dates: start: 20151119, end: 20151119

REACTIONS (2)
  - Chest pain [Recovered/Resolved]
  - Chest discomfort [Recovered/Resolved]

NARRATIVE: CASE EVENT DATE: 20151119
